FAERS Safety Report 6398340-2 (Version None)
Quarter: 2009Q4

REPORT INFORMATION
  Report Type: 
  Country: None (occurrence: None)
  Receive Date: 20091013
  Receipt Date: 20090929
  Transmission Date: 20100525
  Serious: Yes (Hospitalization)
  Sender: FDA-Public Use
  Company Number: IN-SOLVAY-00309002098

PATIENT
  Age: 15286 Day
  Sex: Male
  Weight: 66 kg

DRUGS (8)
  1. SAROTENA [Concomitant]
     Indication: ABDOMINAL PAIN
     Dosage: DAILY DOSE: 20 MILLIGRAM(S)
     Route: 048
     Dates: start: 20090324
  2. CREON [Suspect]
     Indication: PANCREATITIS CHRONIC
     Dosage: DAILY DOSE: 2,40,000, AS USED: 40,000, UNIT DOSE: 40,000, FREQUENCY:SIX CAPS/DAY, THREE TIMES A DAY
     Route: 048
     Dates: start: 20081218
  3. T. VELOZ [Concomitant]
     Indication: GASTRITIS
     Dosage: DAILY DOSE:  UNKNOWN; AS USED AND TOTAL DAILY DOSE 20, FREQUENCY ONCE A DAY
     Route: 048
     Dates: start: 20090406
  4. PLACEBO [Suspect]
     Indication: PANCREATITIS CHRONIC
     Dosage: DAILY DOSE:  UNKNOWN
     Route: 065
     Dates: start: 20080101, end: 20080101
  5. T. GATI [Concomitant]
     Indication: PYREXIA
     Dosage: DAILY DOSE:  UNKNOWN; AS USED AND TOTAL DAILY DOSE 400, FREQUENCY ONCE A DAY
     Route: 048
     Dates: start: 20090408
  6. T. RABIUM DSR [Concomitant]
     Indication: GASTRITIS
     Dosage: DAILY DOSE:  UNKNOWN; AS USED AND TOTAL DAILY DOSE 20, FREQUENCY ONCE A DAY
     Route: 048
     Dates: start: 20090408
  7. CAP BECOSULES [Concomitant]
     Indication: PROPHYLAXIS
     Dosage: DAILY DOSE:  UNKNOWN, FREQUENCY: ONCE A DAY
     Route: 048
     Dates: start: 20090408
  8. KEZONE S [Concomitant]
     Indication: PYREXIA
     Dosage: DAILY DOSE: 2 GRAM(S)
     Route: 042
     Dates: start: 20090408

REACTIONS (5)
  - ABDOMINAL PAIN UPPER [None]
  - GASTRITIS [None]
  - JAUNDICE [None]
  - PANCREAS INFECTION [None]
  - PYREXIA [None]
